FAERS Safety Report 24451631 (Version 1)
Quarter: 2024Q4

REPORT INFORMATION
  Report Type: Spontaneous
  Country: KR (occurrence: KR)
  Receive Date: 20241017
  Receipt Date: 20241017
  Transmission Date: 20250115
  Serious: Yes (Hospitalization)
  Sender: PFIZER
  Company Number: KR-PFIZER INC-202400276635

PATIENT
  Age: 69 Year
  Sex: Male
  Weight: 52.8 kg

DRUGS (1)
  1. ZITHROMAX [Suspect]
     Active Substance: AZITHROMYCIN DIHYDRATE
     Indication: Asthma
     Dosage: 1 DF, 1X/DAY
     Route: 042
     Dates: start: 20230801, end: 20230803

REACTIONS (4)
  - Blood creatine phosphokinase increased [Recovering/Resolving]
  - Tachycardia [Recovering/Resolving]
  - Hepatic enzyme increased [Recovering/Resolving]
  - Off label use [Unknown]

NARRATIVE: CASE EVENT DATE: 20230801
